FAERS Safety Report 17246038 (Version 1)
Quarter: 2020Q1

REPORT INFORMATION
  Report Type: Spontaneous
  Country: US (occurrence: US)
  Receive Date: 20200108
  Receipt Date: 20200108
  Transmission Date: 20200409
  Serious: No
  Sender: FDA-Public Use
  Company Number: US-009507513-1912USA012556

PATIENT
  Age: 92 Year
  Sex: Female

DRUGS (1)
  1. ASMANEX [Suspect]
     Active Substance: MOMETASONE FUROATE
     Dosage: 1 INHALATION ONCE A DAY
     Dates: start: 2019

REACTIONS (3)
  - Poor quality device used [Unknown]
  - Product quality issue [Unknown]
  - Product dose omission [Unknown]

NARRATIVE: CASE EVENT DATE: 201912
